FAERS Safety Report 12745042 (Version 2)
Quarter: 2016Q3

REPORT INFORMATION
  Report Type: Spontaneous
  Country: US (occurrence: US)
  Receive Date: 20160915
  Receipt Date: 20160922
  Transmission Date: 20161109
  Serious: Yes (Other)
  Sender: FDA-Public Use
  Company Number: US-BAUSCH-BL-2016-021750

PATIENT
  Age: 66 Year
  Sex: Female

DRUGS (6)
  1. BESIVANCE [Suspect]
     Active Substance: BESIFLOXACIN
     Indication: POSTOPERATIVE CARE
     Route: 047
     Dates: start: 2016, end: 2016
  2. DUREZOL [Concomitant]
     Active Substance: DIFLUPREDNATE
     Indication: POSTOPERATIVE CARE
     Route: 047
     Dates: start: 2016, end: 2016
  3. BESIVANCE [Suspect]
     Active Substance: BESIFLOXACIN
     Route: 047
     Dates: start: 2016, end: 20160902
  4. DUREZOL [Concomitant]
     Active Substance: DIFLUPREDNATE
     Indication: PREOPERATIVE CARE
     Route: 047
     Dates: start: 20160815, end: 2016
  5. DUREZOL [Concomitant]
     Active Substance: DIFLUPREDNATE
     Route: 047
     Dates: start: 2016
  6. BESIVANCE [Suspect]
     Active Substance: BESIFLOXACIN
     Indication: PREOPERATIVE CARE
     Route: 047
     Dates: start: 20160815, end: 2016

REACTIONS (5)
  - Vision blurred [Recovered/Resolved]
  - Headache [Recovered/Resolved]
  - Photophobia [Recovered/Resolved]
  - Oculogyric crisis [Recovered/Resolved]
  - Treatment noncompliance [Unknown]

NARRATIVE: CASE EVENT DATE: 20160818
